FAERS Safety Report 7783526 (Version 2)
Quarter: 2013Q1

REPORT INFORMATION
  Report Type: Report from Study
  Country: US (occurrence: US)
  Receive Date: 20110129
  Receipt Date: 20130129
  Transmission Date: 20140127
  Serious: Yes (Hospitalization, Other)
  Sender: FDA-Public Use
  Company Number: US-ABBOTT-10P-163-0639291-00

PATIENT
  Age: 47 None
  Sex: Female
  Weight: 93.07 kg

DRUGS (16)
  1. HUMIRA 40 MG/0.8 ML PEN [Suspect]
     Indication: RHEUMATOID ARTHRITIS
     Dates: start: 200910
  2. HUMIRA 40 MG/0.8 ML PEN [Suspect]
     Dates: start: 201003, end: 201101
  3. METHOTREXATE [Concomitant]
     Indication: RHEUMATOID ARTHRITIS
  4. FUROSEMIDE [Concomitant]
     Indication: OEDEMA
     Dosage: INCREASED 80 MG TO 120 MG DAILY
  5. METHYLPREDNISONE [Concomitant]
     Indication: RHEUMATOID ARTHRITIS
  6. KLOR-CON [Concomitant]
     Indication: ELECTROLYTE SUBSTITUTION THERAPY
  7. OMEPRAZOLE [Concomitant]
     Indication: DYSPEPSIA
  8. LEUKOVORIN [Concomitant]
     Indication: VITAMIN SUPPLEMENTATION
  9. CENTRUM [Concomitant]
     Indication: VITAMIN SUPPLEMENTATION
  10. CRESTOR [Concomitant]
     Indication: HIGH DENSITY LIPOPROTEIN DECREASED
  11. CALTRATE WITH VITAMIN D [Concomitant]
     Indication: VITAMIN SUPPLEMENTATION
  12. VITAMIN D [Concomitant]
     Indication: PRODUCT USED FOR UNKNOWN INDICATION
  13. FOLIC ACID [Concomitant]
     Indication: PRODUCT USED FOR UNKNOWN INDICATION
  14. VITAMIN C [Concomitant]
     Indication: PRODUCT USED FOR UNKNOWN INDICATION
  15. TYLENOL [Concomitant]
     Indication: PAIN
  16. CLOBEX [Concomitant]
     Indication: PSORIASIS
     Route: 061

REACTIONS (15)
  - Clostridium difficile infection [Recovered/Resolved]
  - Thrombosis [Not Recovered/Not Resolved]
  - Cellulitis [Not Recovered/Not Resolved]
  - Oropharyngeal pain [Recovering/Resolving]
  - Nasopharyngitis [Recovered/Resolved]
  - Gastroenteritis viral [Recovering/Resolving]
  - Diarrhoea [Recovered/Resolved]
  - Weight increased [Recovered/Resolved]
  - Pain in extremity [Recovering/Resolving]
  - Local swelling [Recovering/Resolving]
  - Groin pain [Recovering/Resolving]
  - Lymphoedema [Not Recovered/Not Resolved]
  - Blister [Not Recovered/Not Resolved]
  - Skin ulcer [Not Recovered/Not Resolved]
  - Swelling [Not Recovered/Not Resolved]
